FAERS Safety Report 8298830-1 (Version None)
Quarter: 2012Q2

REPORT INFORMATION
  Report Type: 
  Country: None (occurrence: None)
  Receive Date: 20120419
  Receipt Date: 20120409
  Transmission Date: 20120825
  Serious: Yes (Hospitalization, Other)
  Sender: FDA-Public Use
  Company Number: GB-TEVA-332443ISR

PATIENT
  Age: 55 Year
  Sex: Male

DRUGS (4)
  1. TRIMETHOPRIM [Suspect]
     Indication: URINARY TRACT INFECTION
     Route: 048
     Dates: start: 20120313, end: 20120328
  2. DIAZEPAM [Concomitant]
  3. ACETAMINOPHEN AND CODEINE PHOSPHATE [Concomitant]
  4. IBUPROFEN [Concomitant]

REACTIONS (7)
  - OROPHARYNGEAL BLISTERING [None]
  - CONTUSION [None]
  - HEADACHE [None]
  - COUGH [None]
  - BLISTER [None]
  - SKIN REACTION [None]
  - DYSPNOEA [None]
